FAERS Safety Report 6491737-1 (Version None)
Quarter: 2009Q4

REPORT INFORMATION
  Report Type: 
  Country: None (occurrence: None)
  Receive Date: 20091208
  Receipt Date: 20091126
  Transmission Date: 20100525
  Serious: Yes (Other)
  Sender: FDA-Public Use
  Company Number: 1000010346

PATIENT
  Age: 32 Year
  Sex: Female

DRUGS (5)
  1. LEXAPRO [Suspect]
     Indication: DEPRESSION
     Dosage: (10 MG),ORAL
     Route: 048
     Dates: start: 20091103
  2. SERDOLECT [Suspect]
     Indication: PSYCHOTIC DISORDER
     Dosage: (4 MG),ORAL
     Route: 048
     Dates: start: 20091025, end: 20091109
  3. SERDOLECT [Suspect]
     Indication: PSYCHOTIC DISORDER
     Dosage: (8 MG),ORAL
     Route: 048
     Dates: start: 20091110, end: 20091115
  4. PAROXETINE [Concomitant]
  5. LOSEC [Concomitant]

REACTIONS (6)
  - DIZZINESS [None]
  - FATIGUE [None]
  - GALACTORRHOEA [None]
  - HEART RATE INCREASED [None]
  - PALLOR [None]
  - SKIN DISORDER [None]
